FAERS Safety Report 6907800-4 (Version None)
Quarter: 2010Q3

REPORT INFORMATION
  Report Type: 
  Country: None (occurrence: None)
  Receive Date: 20100805
  Receipt Date: 20100803
  Transmission Date: 20110219
  Serious: Yes (Other)
  Sender: FDA-Public Use
  Company Number: US-ASTRAZENECA-2007UW21511

PATIENT
  Age: 38 Year
  Sex: Female
  Weight: 129.7 kg

DRUGS (15)
  1. SEROQUEL [Suspect]
     Indication: DEPRESSION
     Dosage: 100MG-300MG
     Route: 048
     Dates: start: 20020101, end: 20030101
  2. SEROQUEL [Suspect]
     Indication: BIPOLAR DISORDER
     Dosage: 100MG-300MG
     Route: 048
     Dates: start: 20020101, end: 20030101
  3. SEROQUEL [Suspect]
     Indication: POST-TRAUMATIC STRESS DISORDER
     Dosage: 100MG-300MG
     Route: 048
     Dates: start: 20020101, end: 20030101
  4. SEROQUEL [Suspect]
     Dosage: 100MG-300MG
     Route: 048
     Dates: start: 20030301, end: 20030701
  5. SEROQUEL [Suspect]
     Dosage: 100MG-300MG
     Route: 048
     Dates: start: 20030301, end: 20030701
  6. SEROQUEL [Suspect]
     Dosage: 100MG-300MG
     Route: 048
     Dates: start: 20030301, end: 20030701
  7. ALLOPURINOL [Concomitant]
     Indication: GOUT
     Route: 048
     Dates: start: 20031013
  8. COLCHICINE [Concomitant]
     Indication: GOUT
     Dates: start: 20031013
  9. LORTAB [Concomitant]
     Dosage: 7.5/500 MG 1 PO EVERY 4 TO 6 HR
     Dates: start: 20031013
  10. GLUCOPHAGE [Concomitant]
     Dates: start: 20031013
  11. AVANDAMET [Concomitant]
     Dosage: 2/500, 2.5/500 TO BE TAKEN BID
     Dates: start: 20040511
  12. SULAR [Concomitant]
     Indication: HYPERTENSION
     Dates: start: 20041018
  13. METHOTREXATE [Concomitant]
     Dates: start: 20041018
  14. HYZAAR [Concomitant]
     Indication: HYPERTENSION
     Dosage: 50/12.5 MG EVERY DAY
     Dates: start: 20041206
  15. CRESTOR [Concomitant]
     Indication: BLOOD CHOLESTEROL

REACTIONS (17)
  - BACK PAIN [None]
  - BLOOD CHOLESTEROL INCREASED [None]
  - BLOOD POTASSIUM DECREASED [None]
  - BLOOD TRIGLYCERIDES INCREASED [None]
  - DIABETES MELLITUS [None]
  - DIABETES MELLITUS INADEQUATE CONTROL [None]
  - DIABETIC COMA [None]
  - DIABETIC COMPLICATION [None]
  - DIABETIC KETOACIDOSIS [None]
  - DIABETIC NEUROPATHY [None]
  - GALLBLADDER DISORDER [None]
  - GLYCOSURIA [None]
  - HYPERLIPIDAEMIA [None]
  - OBESITY [None]
  - STAPHYLOCOCCAL INFECTION [None]
  - TYPE 2 DIABETES MELLITUS [None]
  - WEIGHT DECREASED [None]
